FAERS Safety Report 8770114 (Version 1)
Quarter: 2012Q4

REPORT INFORMATION
  Report Type: 
  Country: US (occurrence: US)
  Receive Date: 20120905
  Receipt Date: 20121015
  Transmission Date: 20130627
  Serious: Yes (Hospitalization, Other)
  Sender: FDA-Public Use
  Company Number: US-AMGEN-USASP2012052980

PATIENT
  Age: 43 Year
  Sex: Female
  Weight: 47.17 kg

DRUGS (1)
  1. PROLIA [Suspect]
     Indication: OSTEOPOROSIS POSTMENOPAUSAL
     Dosage: 60 mg, q6mo
     Route: 058
     Dates: start: 201108

REACTIONS (3)
  - Pancreatitis [Recovered/Resolved]
  - Cholecystitis acute [Unknown]
  - Gastrooesophageal reflux disease [Unknown]
